FAERS Safety Report 9846230 (Version 2)
Quarter: 2014Q1

REPORT INFORMATION
  Report Type: Report from Study
  Country: BR (occurrence: BR)
  Receive Date: 20140127
  Receipt Date: 20140219
  Transmission Date: 20141002
  Serious: Yes (Disabling, Other)
  Sender: FDA-Public Use
  Company Number: PHHY2014BR006761

PATIENT
  Sex: Male
  Weight: 75 kg

DRUGS (8)
  1. FORASEQ [Suspect]
     Indication: ASTHMA
     Dosage: 1 DF, BID
     Route: 055
     Dates: start: 1995
  2. LOSARTAN [Concomitant]
     Dosage: UNK
     Dates: start: 2011
  3. VENALOT [Concomitant]
     Indication: VARICOSE VEIN
     Dosage: UNK
     Dates: start: 1993
  4. FLORATIL [Concomitant]
     Indication: GASTROINTESTINAL DISORDER
     Dosage: UNK UKN, UNK
     Dates: start: 2003
  5. MONTELAIR [Concomitant]
     Dosage: 10 MG, UNK
     Dates: start: 2011
  6. DICETEL [Concomitant]
     Indication: GASTROINTESTINAL DISORDER
     Dosage: 100 MG, UNK
     Dates: start: 201301
  7. CLONAZEPAM [Concomitant]
     Indication: SLEEP DISORDER
     Dosage: 2 MG, UNK
     Dates: start: 2012
  8. RIVOTRIL [Concomitant]
     Indication: SLEEP DISORDER
     Dosage: 2 MG, UNK
     Dates: start: 2004, end: 2012

REACTIONS (6)
  - Blindness unilateral [Not Recovered/Not Resolved]
  - Ocular neoplasm [Not Recovered/Not Resolved]
  - Cataract [Not Recovered/Not Resolved]
  - Dyspnoea exertional [Not Recovered/Not Resolved]
  - Hypersensitivity [Not Recovered/Not Resolved]
  - Asthma [Not Recovered/Not Resolved]
